FAERS Safety Report 10307502 (Version 4)
Quarter: 2014Q3

REPORT INFORMATION
  Report Type: Spontaneous
  Country: US (occurrence: US)
  Receive Date: 20140716
  Receipt Date: 20140925
  Transmission Date: 20150326
  Serious: No
  Sender: FDA-Public Use
  Company Number: US-AMGEN-USASP2014045066

PATIENT
  Age: 74 Year
  Sex: Female
  Weight: 65.76 kg

DRUGS (23)
  1. OMEGA 3                            /01333901/ [Concomitant]
     Dosage: UNK
     Route: 048
  2. VITAMIN B12 [Concomitant]
     Active Substance: CYANOCOBALAMIN
     Dosage: 500 MCG
     Route: 048
  3. PLAQUENIL [Concomitant]
     Active Substance: HYDROXYCHLOROQUINE SULFATE
     Dosage: 200 MG, UNK
     Route: 048
  4. ACCUPRIL [Concomitant]
     Active Substance: QUINAPRIL HYDROCHLORIDE
     Dosage: 40 MG, UNK  PO
     Route: 048
  5. CALCIUM +D                         /00944201/ [Concomitant]
     Active Substance: CALCIUM\VITAMIN D
     Dosage: UNK
     Route: 048
  6. ENBREL [Suspect]
     Active Substance: ETANERCEPT
     Indication: RHEUMATOID ARTHRITIS
     Dosage: 50 MG, QWK
     Route: 058
     Dates: start: 201307, end: 2014
  7. THERATEARS [Concomitant]
     Active Substance: CARBOXYMETHYLCELLULOSE SODIUM
     Dosage: UNK
  8. PRILOSEC [Concomitant]
     Active Substance: OMEPRAZOLE MAGNESIUM
     Dosage: 40 MG, UNK
     Route: 048
  9. IRON [Concomitant]
     Active Substance: IRON
     Dosage: 18 MG, UNK
     Route: 048
  10. BABY ASPIRIN [Concomitant]
     Active Substance: ASPIRIN
     Dosage: 81 MG, UNK
     Route: 048
  11. SALAGEN [Concomitant]
     Active Substance: PILOCARPINE HYDROCHLORIDE
     Dosage: 5 MG, UNK
     Route: 048
  12. LACTULOSE. [Concomitant]
     Active Substance: LACTULOSE
     Dosage: 20 GM/30 PO
  13. FOLIC ACID. [Concomitant]
     Active Substance: FOLIC ACID
     Dosage: UNK
     Route: 048
  14. TYLENOL ALLERGY MULTI SYMPTOM [Concomitant]
     Dosage: UNK
     Route: 048
  15. ASACOL [Concomitant]
     Active Substance: MESALAMINE
     Dosage: 400 MG, UNK
     Route: 048
  16. ZINC [Concomitant]
     Active Substance: ZINC\ZINC CHLORIDE
     Dosage: 30 MG, UNK
     Route: 048
  17. PREMARIN [Concomitant]
     Active Substance: ESTROGENS, CONJUGATED
     Dosage: 0.625 MG, UNK
  18. NORTRIPTYLIN [Concomitant]
     Active Substance: NORTRIPTYLINE
     Dosage: 25 MG, UNK PO
     Route: 048
  19. HYDROCHLOROTH [Concomitant]
     Active Substance: HYDROCHLOROTHIAZIDE
     Dosage: 12.5 MG, UNK
     Route: 048
  20. VALACYCLOVIR [Concomitant]
     Active Substance: VALACYCLOVIR HYDROCHLORIDE
     Dosage: 500 MG, UNK
     Route: 048
  21. RESTASIS [Concomitant]
     Active Substance: CYCLOSPORINE
     Dosage: 0.5 %, OP
  22. NORITATE [Concomitant]
     Active Substance: METRONIDAZOLE
     Dosage: 1 % EX
  23. DOXYCYCLINE MONOHYDRATE [Concomitant]
     Active Substance: DOXYCYCLINE
     Dosage: 75 MG, UNK
     Route: 048

REACTIONS (1)
  - Herpes zoster [Not Recovered/Not Resolved]

NARRATIVE: CASE EVENT DATE: 201406
